FAERS Safety Report 7998517-6 (Version None)
Quarter: 2011Q4

REPORT INFORMATION
  Report Type: 
  Country: None (occurrence: None)
  Receive Date: 20111221
  Receipt Date: 20111220
  Transmission Date: 20120403
  Serious: Yes (Death, Hospitalization)
  Sender: FDA-Public Use
  Company Number: SE-JNJFOC-20111208660

PATIENT
  Age: 56 Year
  Sex: Male

DRUGS (4)
  1. CRESTOR [Suspect]
     Indication: ILL-DEFINED DISORDER
     Dates: start: 20111003
  2. METOPROLOL TARTRATE [Suspect]
     Indication: ILL-DEFINED DISORDER
  3. NAPROXEN [Suspect]
     Indication: ILL-DEFINED DISORDER
  4. SIMPONI [Suspect]
     Indication: ANKYLOSING SPONDYLITIS
     Route: 058
     Dates: start: 20111003

REACTIONS (3)
  - CHOLECYSTITIS [None]
  - PRESYNCOPE [None]
  - CARDIAC FAILURE ACUTE [None]
